FAERS Safety Report 6261201-3 (Version None)
Quarter: 2009Q3

REPORT INFORMATION
  Report Type: 
  Country: None (occurrence: None)
  Receive Date: 20090709
  Receipt Date: 20080822
  Transmission Date: 20100115
  Serious: No
  Sender: FDA-Public Use
  Company Number: US-KINGPHARMUSA00001-K200800990

PATIENT
  Sex: Female

DRUGS (7)
  1. LEVOXYL [Suspect]
     Indication: HYPOTHYROIDISM
     Dosage: 112 MCG, QD
     Route: 048
     Dates: start: 20070801, end: 20080201
  2. LEVOXYL [Suspect]
     Dosage: DOSE DECREASED, UNK, QD
     Route: 048
     Dates: start: 20080201, end: 20080501
  3. LEVOXYL [Suspect]
     Dosage: 112 MCG, QD
     Route: 048
     Dates: start: 20080501
  4. ATORVASTATIN CALCIUM [Concomitant]
     Dosage: 10 MG, QD
     Route: 048
  5. HYZAAR                             /01284801/ [Concomitant]
     Indication: HYPERTENSION
     Dosage: UNK, QD
     Route: 048
  6. LEXAPRO [Concomitant]
     Dosage: 5 MG, QD
     Route: 048
  7. NEXIUM [Concomitant]
     Dosage: 20 MG, QD
     Route: 048

REACTIONS (2)
  - DISTURBANCE IN ATTENTION [None]
  - THYROID FUNCTION TEST ABNORMAL [None]
